FAERS Safety Report 5267576-6 (Version None)
Quarter: 2007Q1

REPORT INFORMATION
  Report Type: 
  Country: None (occurrence: None)
  Receive Date: 20070316
  Receipt Date: 20070314
  Transmission Date: 20070707
  Serious: Yes (Life-Threatening, Hospitalization)
  Sender: FDA-Public Use
  Company Number: DE-BOEHRINGER INGELHEIM GMBH, GERMANY-2006-DE-01596DE

PATIENT
  Sex: Female
  Weight: 91 kg

DRUGS (1)
  1. MICARDIS HCT [Suspect]
     Indication: HYPERTENSION
     Dosage: 80 MG TELMISARTAN, 12,5 MG HCT
     Route: 048
     Dates: end: 20060315

REACTIONS (6)
  - AORTIC STENOSIS [None]
  - ATRIOVENTRICULAR BLOCK COMPLETE [None]
  - SYNCOPE [None]
  - TACHYCARDIA [None]
  - TORSADE DE POINTES [None]
  - VERTIGO [None]
